FAERS Safety Report 23484144 (Version 2)
Quarter: 2024Q1

REPORT INFORMATION
  Report Type: Spontaneous
  Country: JP (occurrence: JP)
  Receive Date: 20240206
  Receipt Date: 20240223
  Transmission Date: 20240410
  Serious: Yes (Hospitalization, Other)
  Sender: FDA-Public Use
  Company Number: JP-MSD-2401JPN007265J

PATIENT
  Age: 93 Year
  Sex: Male

DRUGS (15)
  1. STROMECTOL [Suspect]
     Active Substance: IVERMECTIN
     Indication: Acarodermatitis
     Dosage: UNK
     Route: 048
     Dates: start: 20231125, end: 20231125
  2. STROMECTOL [Suspect]
     Active Substance: IVERMECTIN
     Dosage: 6 MILLIGRAM, ONCE
     Route: 048
     Dates: start: 20231223, end: 20231223
  3. STROMECTOL [Suspect]
     Active Substance: IVERMECTIN
     Dosage: 6 MILLIGRAM, ONCE
     Route: 048
     Dates: start: 20231230, end: 20231230
  4. ASPIRIN [Concomitant]
     Active Substance: ASPIRIN
     Dosage: 100 MILLIGRAM, QD, AFTER BREAKFAST
     Route: 048
     Dates: end: 20231206
  5. NIFEDIPINE [Concomitant]
     Active Substance: NIFEDIPINE
     Dosage: 20 MILLIGRAM, QD, AFTER BREAKFAST
     Route: 048
     Dates: end: 20231206
  6. CANDESARTAN CILEXETIL [Concomitant]
     Active Substance: CANDESARTAN CILEXETIL
     Dosage: 4 MILLIGRAM, QD, AFTER BREAKFAST
     Route: 048
     Dates: end: 20231206
  7. ATORVASTATIN CALCIUM TRIHYDRATE [Concomitant]
     Active Substance: ATORVASTATIN CALCIUM TRIHYDRATE
     Dosage: 10 MILLIGRAM, QD, AFTER BREAKFAST
     Route: 048
     Dates: end: 20231206
  8. RABEPRAZOLE SODIUM [Concomitant]
     Active Substance: RABEPRAZOLE SODIUM
     Dosage: 10 MILLIGRAM, QD, AFTER BREAKFAST
     Route: 048
     Dates: end: 20231206
  9. LAMISIL [Concomitant]
     Active Substance: TERBINAFINE HYDROCHLORIDE
     Dosage: 125 MILLIGRAM, QD, AFTER BREAKFAST
     Route: 048
  10. ARICEPT [Concomitant]
     Active Substance: DONEPEZIL HYDROCHLORIDE
     Dosage: 5 MILLIGRAM, QD, AFTER BREAKFAST
     Route: 048
     Dates: end: 20231206
  11. CEFAZOLIN SODIUM [Concomitant]
     Active Substance: CEFAZOLIN SODIUM
     Indication: Cellulitis
     Dosage: 2 GRAM, Q8H
     Route: 065
     Dates: start: 20231124, end: 20231127
  12. NIZORAL [Concomitant]
     Active Substance: KETOCONAZOLE
     Indication: Fungal infection
     Dosage: UNK
     Dates: start: 20231124
  13. BILANOA OD [Concomitant]
     Indication: Pruritus
     Dosage: 20 MILLIGRAM, QD, BEFORE BED
     Route: 048
     Dates: start: 20231125
  14. OLOPATADINE HYDROCHLORIDE [Concomitant]
     Active Substance: OLOPATADINE HYDROCHLORIDE
     Indication: Pruritus
     Dosage: 5 MILLIGRAM, BID, AFTER THE MORNING AND EVENING MEAL
     Route: 048
     Dates: start: 20231124
  15. EURAX [Concomitant]
     Active Substance: CROTAMITON
     Indication: Pruritus
     Dosage: UNK, PRN
     Route: 065

REACTIONS (12)
  - Azotaemia [Recovering/Resolving]
  - Pneumonia [Unknown]
  - Ascites [Unknown]
  - Delirium [Recovered/Resolved]
  - Pain [Unknown]
  - Cellulitis [Unknown]
  - Urinary tract infection [Unknown]
  - Hypophagia [Unknown]
  - Oxygen saturation decreased [Unknown]
  - Lung opacity [Unknown]
  - Bladder hypertrophy [Unknown]
  - Inappropriate schedule of product administration [Unknown]

NARRATIVE: CASE EVENT DATE: 20230101
